FAERS Safety Report 5013640-6 (Version None)
Quarter: 2006Q2

REPORT INFORMATION
  Report Type: 
  Country: None (occurrence: None)
  Receive Date: 20060530
  Receipt Date: 20060516
  Transmission Date: 20061013
  Serious: Yes (Hospitalization)
  Sender: FDA-Public Use
  Company Number: FR-GLAXOSMITHKLINE-B0424420A

PATIENT
  Age: 25 Year
  Sex: Male

DRUGS (1)
  1. LAMICTAL [Suspect]
     Route: 048
     Dates: start: 20060314, end: 20060325

REACTIONS (4)
  - BURNING SENSATION [None]
  - CHEILITIS [None]
  - ECZEMA [None]
  - RASH MACULO-PAPULAR [None]
